FAERS Safety Report 11051482 (Version 2)
Quarter: 2015Q2

REPORT INFORMATION
  Report Type: Report from Study
  Country: JP (occurrence: JP)
  Receive Date: 20150421
  Receipt Date: 20150430
  Transmission Date: 20150821
  Serious: Yes (Life-Threatening, Other)
  Sender: FDA-Public Use
  Company Number: JP-SHIRE-JP201503417

PATIENT
  Age: 3 Year
  Sex: Male

DRUGS (2)
  1. IDURSULFASE [Suspect]
     Active Substance: IDURSULFASE
     Dosage: UNK, UNKNOWN
     Route: 041
     Dates: start: 201209
  2. IDURSULFASE [Suspect]
     Active Substance: IDURSULFASE
     Indication: MUCOPOLYSACCHARIDOSIS II
     Dosage: 12 MG, UNKNOWN
     Route: 041
     Dates: start: 20140714

REACTIONS (1)
  - Craniosynostosis [Recovering/Resolving]

NARRATIVE: CASE EVENT DATE: 20140718
